FAERS Safety Report 6231515-1 (Version None)
Quarter: 2009Q2

REPORT INFORMATION
  Report Type: 
  Country: None (occurrence: None)
  Receive Date: 20090616
  Receipt Date: 20090608
  Transmission Date: 20091009
  Serious: Yes (Life-Threatening)
  Sender: FDA-Public Use
  Company Number: B0577873A

PATIENT
  Sex: Female
  Weight: 70 kg

DRUGS (4)
  1. VENTOLIN [Suspect]
     Indication: PULMONARY EMBOLISM
     Dosage: 100MCG AS REQUIRED
     Route: 055
     Dates: start: 20090511, end: 20090514
  2. TAZOCILLINE [Suspect]
     Dosage: 12G PER DAY
     Route: 042
     Dates: start: 20090511, end: 20090521
  3. NORSET [Concomitant]
     Indication: DRUG USE FOR UNKNOWN INDICATION
     Route: 065
  4. VASTAREL [Concomitant]
     Indication: DRUG USE FOR UNKNOWN INDICATION
     Route: 065

REACTIONS (4)
  - APATHY [None]
  - DYSPHAGIA [None]
  - HYPOKALAEMIA [None]
  - MUSCULAR WEAKNESS [None]
